FAERS Safety Report 6465561-X (Version None)
Quarter: 2009Q4

REPORT INFORMATION
  Report Type: 
  Country: None (occurrence: None)
  Receive Date: 20091124
  Receipt Date: 20091110
  Transmission Date: 20100525
  Serious: Yes (Other)
  Sender: FDA-Public Use
  Company Number: SPV1-2009-02152

PATIENT
  Age: 2 Year
  Sex: Female

DRUGS (3)
  1. ELAPRASE [Suspect]
     Indication: MUCOPOLYSACCHARIDOSIS II
     Dosage: 0.5 MG/KG, 1X/WEEK, IV DRIP
     Route: 041
     Dates: start: 20060911
  2. TRIMETON (PHENIRAMINE MALEATE) [Concomitant]
  3. URBASON (METHYLPREDNISOLONE) [Concomitant]

REACTIONS (2)
  - BRONCHOSPASM [None]
  - INFUSION RELATED REACTION [None]
